FAERS Safety Report 15803436 (Version 1)
Quarter: 2019Q1

REPORT INFORMATION
  Report Type: Spontaneous
  Country: US (occurrence: US)
  Receive Date: 20190109
  Receipt Date: 20190109
  Transmission Date: 20190417
  Serious: Yes (Death, Hospitalization)
  Sender: FDA-Public Use
  Company Number: US-MYLANLABS-2018M1098080

PATIENT
  Age: 40 Year
  Sex: Female

DRUGS (1)
  1. MAGNESIUM SULFATE. [Suspect]
     Active Substance: MAGNESIUM SULFATE
     Indication: WEIGHT DECREASED
     Route: 048

REACTIONS (15)
  - Electrocardiogram QT prolonged [Unknown]
  - Hypotension [Fatal]
  - Nervous system disorder [Fatal]
  - Hypermagnesaemia [Recovered/Resolved]
  - Hepatic enzyme increased [Unknown]
  - Defect conduction intraventricular [Unknown]
  - Intentional product misuse [Fatal]
  - Unresponsive to stimuli [Unknown]
  - Accidental overdose [Fatal]
  - Cardiac arrest [Fatal]
  - Loss of consciousness [Unknown]
  - Hypoxic-ischaemic encephalopathy [Fatal]
  - Lactic acidosis [Unknown]
  - Coma [Unknown]
  - Atrioventricular block first degree [Unknown]

NARRATIVE: CASE EVENT DATE: 2017
